FAERS Safety Report 22599039 (Version 1)
Quarter: 2023Q2

REPORT INFORMATION
  Report Type: Spontaneous
  Country: US (occurrence: US)
  Receive Date: 20230614
  Receipt Date: 20230614
  Transmission Date: 20230721
  Serious: Yes (Hospitalization)
  Sender: FDA-Public Use
  Company Number: US-SA-SAC20230613001456

PATIENT
  Age: 61 Year
  Sex: Male
  Weight: 103.41 kg

DRUGS (2)
  1. DUPIXENT [Interacting]
     Active Substance: DUPILUMAB
     Indication: Dermatitis atopic
     Dosage: 300MG QOW
     Route: 058
     Dates: start: 202111
  2. OCUVITE + LUTEIN [Concomitant]

REACTIONS (3)
  - Colitis [Unknown]
  - Drug interaction [Unknown]
  - Herpes zoster [Unknown]

NARRATIVE: CASE EVENT DATE: 20230101
